FAERS Safety Report 7844918-6 (Version None)
Quarter: 2011Q4

REPORT INFORMATION
  Report Type: 
  Country: None (occurrence: None)
  Receive Date: 20111025
  Receipt Date: 20110307
  Transmission Date: 20120403
  Serious: No
  Sender: FDA-Public Use
  Company Number: US-BAYER-2011-000690

PATIENT
  Age: 42 Year
  Sex: Male
  Weight: 90.703 kg

DRUGS (2)
  1. COLD MEDICATION [Concomitant]
     Dosage: UNK
     Dates: start: 20101228
  2. MAGNEVIST [Suspect]
     Indication: NUCLEAR MAGNETIC RESONANCE IMAGING BRAIN
     Dosage: 15 ML, ONCE
     Route: 042
     Dates: start: 20101228, end: 20101228

REACTIONS (2)
  - COUGH [None]
  - ERYTHEMA [None]
